FAERS Safety Report 8538106-8 (Version None)
Quarter: 2012Q3

REPORT INFORMATION
  Report Type: 
  Country: None (occurrence: None)
  Receive Date: 20120725
  Receipt Date: 20120718
  Transmission Date: 20120928
  Serious: Yes (Hospitalization, Other)
  Sender: FDA-Public Use
  Company Number: US-009507513-1203USA00877

PATIENT

DRUGS (15)
  1. ASCORBIC ACID [Concomitant]
     Dosage: UNK UNK, QD
  2. VITAMIN D (UNSPECIFIED) [Concomitant]
     Dosage: 1000 MG, QD
  3. POTASSIUM (UNSPECIFIED) [Concomitant]
     Dosage: 12-20
  4. FOSAMAX [Suspect]
     Route: 048
     Dates: start: 20080301, end: 20100701
  5. MK-9278 [Concomitant]
     Dosage: UNK UNK, QD
  6. MK-0152 [Concomitant]
     Indication: HYPERTENSION
     Dosage: 25-50
     Route: 048
     Dates: start: 19981221
  7. ALENDRONATE SODIUM [Suspect]
     Dates: start: 20080331, end: 20100421
  8. CALCIUM CARBONATE [Concomitant]
     Dosage: UNK UNK, BID
  9. FOSAMAX PLUS D [Suspect]
     Dosage: 70/5600
     Route: 048
     Dates: start: 20090901
  10. ALENDRONATE SODIUM [Suspect]
     Indication: OSTEOPOROSIS
     Dates: start: 20080331, end: 20100421
  11. NORVASC [Concomitant]
     Indication: HYPERTENSION
     Dosage: 5 MG, QD
     Dates: start: 20100415
  12. FOSAMAX [Suspect]
     Indication: OSTEOPOROSIS
     Dosage: 70 MG, QW
     Route: 048
     Dates: start: 20020216, end: 20080301
  13. IRON (UNSPECIFIED) [Concomitant]
     Dosage: UNK UNK, QD
  14. PRAVACHOL [Concomitant]
     Indication: HYPERLIPIDAEMIA
     Dosage: 20-40
  15. MK-9039 [Concomitant]

REACTIONS (34)
  - GAIT DISTURBANCE [None]
  - SKIN CANCER [None]
  - BLOOD ALKALINE PHOSPHATASE INCREASED [None]
  - BLOOD PRESSURE DECREASED [None]
  - GASTROOESOPHAGEAL REFLUX DISEASE [None]
  - LIP NEOPLASM MALIGNANT STAGE UNSPECIFIED [None]
  - LEUKOCYTOSIS [None]
  - LOW TURNOVER OSTEOPATHY [None]
  - BODY HEIGHT DECREASED [None]
  - CONSTIPATION [None]
  - ARTHRALGIA [None]
  - BREAST FIBROSIS [None]
  - OSTEOPENIA [None]
  - EXCORIATION [None]
  - GASTRITIS [None]
  - FEMUR FRACTURE [None]
  - TOOTH DISORDER [None]
  - OSTEOARTHRITIS [None]
  - TINEA INFECTION [None]
  - SKIN DISORDER [None]
  - ECCHYMOSIS [None]
  - HIATUS HERNIA [None]
  - ANAEMIA POSTOPERATIVE [None]
  - LIVER FUNCTION TEST ABNORMAL [None]
  - OEDEMA PERIPHERAL [None]
  - WEIGHT INCREASED [None]
  - CELLULITIS [None]
  - HYPERCHROMIC ANAEMIA [None]
  - CARDIAC MURMUR [None]
  - INSOMNIA [None]
  - HAEMORRHOIDS [None]
  - URINARY INCONTINENCE [None]
  - CATARACT [None]
  - URINARY TRACT INFECTION [None]
